FAERS Safety Report 6229715-X (Version None)
Quarter: 2009Q2

REPORT INFORMATION
  Report Type: 
  Country: None (occurrence: None)
  Receive Date: 20090615
  Receipt Date: 20090611
  Transmission Date: 20091009
  Serious: Yes (Hospitalization, Disabling, Other)
  Sender: FDA-Public Use
  Company Number: US-MERCK-0905USA03908

PATIENT
  Sex: Female

DRUGS (2)
  1. SINGULAIR [Suspect]
     Indication: ASTHMA
     Route: 048
  2. ADVAIR HFA [Concomitant]
     Route: 065

REACTIONS (9)
  - BLOOD IMMUNOGLOBULIN G INCREASED [None]
  - COELIAC DISEASE [None]
  - DIARRHOEA [None]
  - DISTURBANCE IN ATTENTION [None]
  - INFLUENZA [None]
  - LYMPHADENOPATHY [None]
  - MEMORY IMPAIRMENT [None]
  - VOMITING [None]
  - WEIGHT DECREASED [None]
